FAERS Safety Report 9124666 (Version 2)
Quarter: 2013Q1

REPORT INFORMATION
  Report Type: Spontaneous
  Country: US (occurrence: US)
  Receive Date: 20130116
  Receipt Date: 20130320
  Transmission Date: 20140127
  Serious: Yes (Death, Hospitalization, Other)
  Sender: FDA-Public Use
  Company Number: PHEH2013US001118

PATIENT
  Sex: Male
  Weight: 82.99 kg

DRUGS (26)
  1. AFINITOR [Suspect]
     Indication: CARCINOID SYNDROME
     Dosage: 10 MG, QD
     Route: 048
     Dates: start: 201104, end: 20110420
  2. AFINITOR [Suspect]
     Dosage: 5 MG, QD
     Route: 048
     Dates: start: 20110826, end: 201203
  3. SANDOSTATIN LAR [Suspect]
     Indication: CARCINOID SYNDROME
     Dosage: UNK
     Dates: start: 20101202, end: 20110127
  4. SANDOSTATIN LAR [Suspect]
     Dosage: UNK, MONTHLY
     Route: 030
     Dates: start: 20110223, end: 20121206
  5. SUTENT [Suspect]
     Indication: CARCINOID SYNDROME
     Dosage: 12.5 MG, QD
     Route: 048
     Dates: start: 20120124, end: 20121115
  6. ASPIRIN [Concomitant]
     Dosage: 81 MG, QD
     Route: 048
     Dates: start: 20101118
  7. FISH OIL [Concomitant]
     Dosage: 1 DF, QD
     Route: 048
     Dates: start: 20101118
  8. FLAGYL [Concomitant]
     Dosage: 500 MG, TID
     Route: 048
     Dates: start: 20110622
  9. LOMOTIL [Concomitant]
     Dosage: UNK
     Dates: start: 20101202
  10. LOSARTAN [Concomitant]
     Dosage: 25 MG, QD
     Route: 048
     Dates: start: 20110812
  11. LOSARTAN [Concomitant]
     Dosage: 50 UNK, UNK
     Route: 048
     Dates: start: 20111201
  12. LOSARTAN + HIDROCLOROTIAZIDA [Concomitant]
     Dosage: UNK
     Dates: start: 20111230
  13. MEGESTROL [Concomitant]
     Dosage: 40 MG, BID
     Dates: start: 20110223
  14. MULTI-VIT [Concomitant]
     Dosage: UNK
     Dates: start: 20101118
  15. PERCOCET [Concomitant]
  16. POTASSIUM CHLORIDE [Concomitant]
  17. REGLAN [Concomitant]
  18. SYNTHROID [Concomitant]
  19. TOPROL XL [Concomitant]
  20. VYTORIN [Concomitant]
  21. ZITHROMAX [Concomitant]
  22. METOPROLOL [Concomitant]
  23. PHENERGAN [Concomitant]
  24. IRON [Concomitant]
  25. MAG OXIDE [Concomitant]
  26. MEGACE [Concomitant]

REACTIONS (22)
  - Death [Fatal]
  - Renal failure chronic [Unknown]
  - Renal failure [Unknown]
  - Fall [Unknown]
  - Balance disorder [Unknown]
  - Confusional state [Unknown]
  - Gait disturbance [Unknown]
  - Abdominal distension [Unknown]
  - Abdominal mass [Unknown]
  - Dizziness [Unknown]
  - Weight decreased [Unknown]
  - Hyperlipidaemia [Unknown]
  - Carcinoid syndrome [Unknown]
  - Malignant neoplasm progression [Unknown]
  - Metastases to lymph nodes [Unknown]
  - Metastases to peritoneum [Unknown]
  - Fatigue [Unknown]
  - Diarrhoea [Unknown]
  - Abdominal pain [Recovering/Resolving]
  - Constipation [Unknown]
  - Nausea [Unknown]
  - Anaemia [Unknown]
